FAERS Safety Report 5781725-2 (Version None)
Quarter: 2008Q2

REPORT INFORMATION
  Report Type: 
  Country: None (occurrence: None)
  Receive Date: 20080623
  Receipt Date: 20070905
  Transmission Date: 20081010
  Serious: No
  Sender: FDA-Public Use
  Company Number: US-ASTRAZENECA-2007UW21164

PATIENT
  Sex: Female

DRUGS (1)
  1. RHINOCORT [Suspect]
     Dosage: ONE SPRAY PER NOSTRIL QD
     Route: 045

REACTIONS (2)
  - HEADACHE [None]
  - INCREASED UPPER AIRWAY SECRETION [None]
